FAERS Safety Report 23906104 (Version 1)
Quarter: 2024Q2

REPORT INFORMATION
  Report Type: Spontaneous
  Country: US (occurrence: None)
  Receive Date: 20240527
  Receipt Date: 20240527
  Transmission Date: 20240716
  Serious: Yes (Hospitalization, Other)
  Sender: FDA-Public Use
  Company Number: US-Unichem Pharmaceuticals (USA) Inc-UCM202405-000561

PATIENT
  Age: 61 Year
  Sex: Male

DRUGS (8)
  1. BACLOFEN [Suspect]
     Active Substance: BACLOFEN
     Indication: Muscle spasticity
     Dosage: UNKNOWN
     Route: 039
  2. BACLOFEN [Suspect]
     Active Substance: BACLOFEN
  3. BACLOFEN [Suspect]
     Active Substance: BACLOFEN
  4. FENTANYL [Concomitant]
     Active Substance: FENTANYL\FENTANYL CITRATE
     Indication: Pain
     Dosage: UNKNOWN
  5. GABAPENTIN [Concomitant]
     Active Substance: GABAPENTIN
     Indication: Pain
     Dosage: UNKNOWN
  6. METHADONE [Concomitant]
     Active Substance: METHADONE HYDROCHLORIDE
     Indication: Pain
     Dosage: UNKNOWN
  7. CLONAZEPAM [Concomitant]
     Active Substance: CLONAZEPAM
     Indication: Pain
     Dosage: UNKNOWN
  8. TIZANIDINE [Concomitant]
     Active Substance: TIZANIDINE
     Indication: Pain
     Dosage: UNKNOWN

REACTIONS (5)
  - Withdrawal syndrome [Recovered/Resolved]
  - Irritability [Recovered/Resolved]
  - Muscle twitching [Recovered/Resolved]
  - Muscle spasms [Recovered/Resolved]
  - Product use issue [Unknown]
